FAERS Safety Report 4915232-3 (Version None)
Quarter: 2006Q1

REPORT INFORMATION
  Report Type: 
  Country: None (occurrence: None)
  Receive Date: 20060216
  Receipt Date: 20060216
  Transmission Date: 20060701
  Serious: Yes (Hospitalization)
  Sender: FDA-Public Use
  Company Number: None

PATIENT
  Sex: Female
  Weight: 80.7403 kg

DRUGS (6)
  1. WELLBUTRIN [Suspect]
     Indication: BIPOLAR DISORDER
     Dosage: 300MG PO QD   DOSE INCREASED 2 DAYS PRIOR TO ADMISSION
     Route: 048
  2. ATIVAN [Suspect]
     Dosage: PO   PRIOR TO ADMISSION
     Route: 048
  3. WARFARIN SODIUM [Concomitant]
  4. SYNTHROID [Concomitant]
  5. DEPAKOTE [Concomitant]
  6. HYDROCHLOROTHIAZIDE [Concomitant]

REACTIONS (2)
  - DIZZINESS [None]
  - VERTIGO [None]
